FAERS Safety Report 11068005 (Version 1)
Quarter: 2015Q2

REPORT INFORMATION
  Report Type: Spontaneous
  Country: IT (occurrence: IT)
  Receive Date: 20150427
  Receipt Date: 20150427
  Transmission Date: 20150821
  Serious: Yes (Hospitalization)
  Sender: FDA-Public Use
  Company Number: IT-TEVA-556886ACC

PATIENT
  Age: 37 Year
  Sex: Male

DRUGS (5)
  1. ENDOXAN BAXTER - 1 G POLVERE PER SOLUZIONE INIETTABILE - BAXTER S.P.A. [Suspect]
     Active Substance: CYCLOPHOSPHAMIDE
     Indication: LYMPHOMA
     Dosage: 2268 MG CYCLICAL (POWDER FOR SOLUTION FOR INJECTION)
     Route: 042
     Dates: start: 20150309, end: 20150309
  2. ADRIBLASTINA - 200MG/100ML SOLUZIONE INIETTABILE - PFIZER ITALIA SRL [Suspect]
     Active Substance: DOXORUBICIN HYDROCHLORIDE
     Indication: LYMPHOMA
     Dosage: 66.1 MG CYCLICAL
     Route: 040
     Dates: start: 20150309, end: 20150309
  3. BLEOPRIM - 15 MG POLVERE PER SOLUZIONE INIETTABILE - SANOFI S.P.A. [Suspect]
     Active Substance: BLEOMYCIN SULFATE
     Indication: LYMPHOMA
     Dosage: 18.9 MG CYCLICAL (POWDER FOR SOLUTION FOR INJECTION)
     Route: 040
     Dates: start: 20150223, end: 20150316
  4. ETOPOSIDE TEVA - TEVA PHARMA B.V. [Suspect]
     Active Substance: ETOPOSIDE
     Indication: LYMPHOMA
     Dosage: 378 MG CYCLICAL
     Route: 042
     Dates: start: 20150309, end: 20150311
  5. VINCRISTINA CRINOS - 1 MG/ML SOLUZIONE INIETTABILE - CRINOS S.P.A. [Suspect]
     Active Substance: VINCRISTINE SULFATE
     Indication: LYMPHOMA
     Dosage: 2 MG CYCLICAL
     Route: 040
     Dates: start: 20150223, end: 20150316

REACTIONS (4)
  - Skin lesion [Recovered/Resolved]
  - Febrile neutropenia [Recovered/Resolved]
  - Clostridium difficile infection [None]
  - Enterocolitis [Recovered/Resolved]

NARRATIVE: CASE EVENT DATE: 20150319
